FAERS Safety Report 25371032 (Version 1)
Quarter: 2025Q2

REPORT INFORMATION
  Report Type: Spontaneous
  Country: IE (occurrence: IE)
  Receive Date: 20250529
  Receipt Date: 20250529
  Transmission Date: 20250717
  Serious: Yes (Other)
  Sender: AMGEN
  Company Number: IE-AMGEN-IRLSP2025100161

PATIENT

DRUGS (1)
  1. PROLIA [Suspect]
     Active Substance: DENOSUMAB
     Indication: Orthostatic hypotension
     Route: 065

REACTIONS (4)
  - Parkinson^s disease [Unknown]
  - Orthostatic hypotension [Unknown]
  - Drug effective for unapproved indication [Unknown]
  - Off label use [Unknown]
